FAERS Safety Report 9380114 (Version 1)
Quarter: 2013Q2

REPORT INFORMATION
  Report Type: Spontaneous
  Country: IE (occurrence: None)
  Receive Date: 20130628
  Receipt Date: 20130628
  Transmission Date: 20140414
  Serious: Yes (Hospitalization)
  Sender: FDA-Public Use
  Company Number: 2013000145

PATIENT
  Age: 78 Year
  Sex: Male
  Weight: 67 kg

DRUGS (9)
  1. ACEON (PERINDOPRIL ERBUMINE) TABLET [Suspect]
     Indication: HYPERTENSION
     Dates: start: 2008, end: 20120612
  2. ORTERONEL [Suspect]
     Indication: PROSTATE CANCER
     Route: 048
     Dates: start: 20120210, end: 20120605
  3. PLACEBO [Suspect]
     Indication: PROSTATE CANCER
     Route: 048
     Dates: start: 20120210, end: 20120605
  4. PREDNISONE (PREDNISONE) [Suspect]
     Indication: PROSTATE CANCER
     Route: 048
     Dates: start: 20120210, end: 20120810
  5. ASPIRIN (ASPIRIN) [Concomitant]
  6. EMCOR (BISOPROLOL FUMARATE) [Concomitant]
  7. NEXIUM (ESOMEPRASOLE MAGNESIUM) [Concomitant]
  8. LIPITOR (ATOVASTATIN CALCIUM) [Concomitant]
  9. ASACOLON (MESALAZINE) [Concomitant]

REACTIONS (3)
  - Hepatotoxicity [None]
  - Hepatic enzyme increased [None]
  - Renal failure acute [None]
